FAERS Safety Report 7817395-9 (Version None)
Quarter: 2011Q4

REPORT INFORMATION
  Report Type: 
  Country: None (occurrence: None)
  Receive Date: 20111013
  Receipt Date: 20111003
  Transmission Date: 20120403
  Serious: Yes (Death)
  Sender: FDA-Public Use
  Company Number: 1069828

PATIENT
  Age: 29 Year
  Sex: Female

DRUGS (1)
  1. PROPOFOL [Suspect]
     Indication: INDUCTION OF ANAESTHESIA
     Dosage: 100 MG, INTRAVENOUS DRIP
     Route: 041

REACTIONS (25)
  - PULMONARY OEDEMA [None]
  - BLOOD PHOSPHORUS INCREASED [None]
  - ANURIA [None]
  - BLOOD PH DECREASED [None]
  - BLOOD OSMOLARITY INCREASED [None]
  - WHITE BLOOD CELL COUNT INCREASED [None]
  - BLOOD SODIUM DECREASED [None]
  - ATRIAL FIBRILLATION [None]
  - PCO2 INCREASED [None]
  - BLOOD CHLORIDE DECREASED [None]
  - ASPARTATE AMINOTRANSFERASE INCREASED [None]
  - BLOOD GLUCOSE INCREASED [None]
  - BLOOD BICARBONATE DECREASED [None]
  - HYPERKALAEMIA [None]
  - CARDIO-RESPIRATORY ARREST [None]
  - ALANINE AMINOTRANSFERASE INCREASED [None]
  - BLOOD ALBUMIN DECREASED [None]
  - BLOOD ALKALINE PHOSPHATASE INCREASED [None]
  - BLOOD LACTATE DEHYDROGENASE INCREASED [None]
  - STUPOR [None]
  - REFUSAL OF TREATMENT BY RELATIVE [None]
  - HAEMOGLOBIN DECREASED [None]
  - HAEMATOCRIT DECREASED [None]
  - VENTRICULAR FIBRILLATION [None]
  - BASE EXCESS DECREASED [None]
